FAERS Safety Report 6973663-4 (Version None)
Quarter: 2010Q3

REPORT INFORMATION
  Report Type: 
  Country: None (occurrence: None)
  Receive Date: 20100909
  Receipt Date: 20100902
  Transmission Date: 20110219
  Serious: Yes (Other)
  Sender: FDA-Public Use
  Company Number: US-TEVA-245996USA

PATIENT
  Sex: Male

DRUGS (4)
  1. NASAREL [Suspect]
     Indication: SEASONAL ALLERGY
     Route: 045
     Dates: start: 19800101, end: 20000101
  2. NASAREL [Suspect]
     Indication: RHINITIS ALLERGIC
  3. FLUTICASONE PROPIONATE [Suspect]
     Indication: SEASONAL ALLERGY
     Dosage: 2 SPRAY TWICE PER DAY
     Route: 045
  4. FLUTICASONE PROPIONATE [Suspect]
     Indication: RHINITIS ALLERGIC

REACTIONS (4)
  - CATARACT [None]
  - GLAUCOMA [None]
  - INTRAOCULAR PRESSURE INCREASED [None]
  - OPTIC NERVE DISORDER [None]
